FAERS Safety Report 25306710 (Version 1)
Quarter: 2025Q2

REPORT INFORMATION
  Report Type: Spontaneous
  Country: US (occurrence: None)
  Receive Date: 20250509
  Receipt Date: 20250509
  Transmission Date: 20250717
  Serious: Yes (unspecified)
  Sender: FDA-CTU
  Company Number: None

PATIENT
  Age: 54 Year
  Sex: Female
  Weight: 75 kg

DRUGS (1)
  1. UBRELVY [Suspect]
     Active Substance: UBROGEPANT

REACTIONS (1)
  - Constipation [None]

NARRATIVE: CASE EVENT DATE: 20250508
